FAERS Safety Report 13209196 (Version 1)
Quarter: 2017Q1

REPORT INFORMATION
  Report Type: Spontaneous
  Country: US (occurrence: US)
  Receive Date: 20170209
  Receipt Date: 20170209
  Transmission Date: 20170428
  Serious: No
  Sender: FDA-Public Use
  Company Number: US-PERRIGO-16US018004

PATIENT
  Age: 8 Year
  Sex: Male
  Weight: 22.22 kg

DRUGS (2)
  1. IBUPROFEN. [Suspect]
     Active Substance: IBUPROFEN
     Indication: PYREXIA
     Dosage: 200 MG, EVERY 6 HOURS
     Route: 048
     Dates: start: 20160704, end: 20160709
  2. IBUPROFEN. [Suspect]
     Active Substance: IBUPROFEN
     Indication: PAIN
     Dosage: 200 MG, EVERY 6 HOURS
     Route: 048
     Dates: start: 20160710

REACTIONS (2)
  - Wrong technique in product usage process [Recovered/Resolved]
  - Abdominal pain upper [Recovered/Resolved]

NARRATIVE: CASE EVENT DATE: 20160704
